FAERS Safety Report 11969953 (Version 1)
Quarter: 2016Q1

REPORT INFORMATION
  Report Type: Spontaneous
  Country: US (occurrence: None)
  Receive Date: 20160126
  Receipt Date: 20160126
  Transmission Date: 20160526
  Serious: No
  Sender: FDA-Public Use
  Company Number: None

PATIENT
  Age: 64 Year
  Sex: Female

DRUGS (1)
  1. AVONEX [Suspect]
     Active Substance: INTERFERON BETA-1A
     Indication: RHEUMATOID ARTHRITIS
     Route: 030
     Dates: start: 20130110

REACTIONS (1)
  - Fatigue [None]

NARRATIVE: CASE EVENT DATE: 20151221
